FAERS Safety Report 9510444 (Version 1)
Quarter: 2013Q3

REPORT INFORMATION
  Report Type: Spontaneous
  Country: CN (occurrence: CN)
  Receive Date: 20130909
  Receipt Date: 20130909
  Transmission Date: 20140515
  Serious: Yes (Other)
  Sender: FDA-Public Use
  Company Number: CN-B.I. PHARMACEUTICALS,INC./RIDGEFIELD-2013-BI-27811YA

PATIENT
  Sex: Male

DRUGS (4)
  1. HARNAL [Suspect]
     Indication: MICTURITION URGENCY
     Route: 048
  2. HARNAL [Suspect]
     Indication: POLLAKIURIA
  3. VESICARE [Suspect]
     Indication: MICTURITION URGENCY
     Route: 065
  4. VESICARE [Suspect]
     Indication: POLLAKIURIA

REACTIONS (2)
  - Urinary retention [Unknown]
  - Off label use [Unknown]
